FAERS Safety Report 9442846 (Version 1)
Quarter: 2013Q3

REPORT INFORMATION
  Report Type: Spontaneous
  Country: US (occurrence: US)
  Receive Date: 20130806
  Receipt Date: 20130806
  Transmission Date: 20140515
  Serious: Yes (Other)
  Sender: FDA-Public Use
  Company Number: US-PFIZER INC-2013228143

PATIENT
  Age: 61 Year
  Sex: Male
  Weight: 95.24 kg

DRUGS (2)
  1. PRISTIQ [Suspect]
     Indication: DEPRESSION
     Dosage: 50 MG, 1X/DAY
  2. WELLBUTRIN [Concomitant]
     Dosage: UNK, 1X/DAY

REACTIONS (1)
  - Parkinson^s disease [Unknown]
